FAERS Safety Report 9671069 (Version 2)
Quarter: 2014Q2

REPORT INFORMATION
  Report Type: Spontaneous
  Country: US (occurrence: US)
  Receive Date: 20131106
  Receipt Date: 20140522
  Transmission Date: 20141212
  Serious: No
  Sender: FDA-Public Use
  Company Number: US-PFIZER INC-2013313143

PATIENT
  Sex: Female

DRUGS (7)
  1. NORVASC [Suspect]
     Dosage: UNK
  2. HEPARIN SODIUM [Suspect]
     Dosage: UNK
  3. ASA [Suspect]
     Dosage: UNK
  4. CIPRO [Suspect]
     Dosage: UNK
  5. ROCEPHIN [Suspect]
     Dosage: UNK
  6. TORADOL [Suspect]
     Dosage: UNK
  7. BEE VENOM [Suspect]
     Dosage: UNK

REACTIONS (1)
  - Drug hypersensitivity [Unknown]
